FAERS Safety Report 23937985 (Version 1)
Quarter: 2024Q2

REPORT INFORMATION
  Report Type: Spontaneous
  Country: BR (occurrence: BR)
  Receive Date: 20240604
  Receipt Date: 20240604
  Transmission Date: 20240715
  Serious: Yes (Hospitalization, Other)
  Sender: FDA-Public Use
  Company Number: BR-JNJFOC-20240586148

PATIENT
  Age: 44 Year
  Sex: Male
  Weight: 106 kg

DRUGS (2)
  1. SIMPONI [Suspect]
     Active Substance: GOLIMUMAB
     Indication: Rheumatoid arthritis
     Route: 058
  2. SIMPONI [Suspect]
     Active Substance: GOLIMUMAB

REACTIONS (5)
  - Rheumatoid arthritis [Unknown]
  - Ischaemic stroke [Unknown]
  - Gouty arthritis [Unknown]
  - Product dose omission issue [Unknown]
  - Off label use [Unknown]
